FAERS Safety Report 16418810 (Version 1)
Quarter: 2019Q2

REPORT INFORMATION
  Report Type: Spontaneous
  Country: IT (occurrence: IT)
  Receive Date: 20190612
  Receipt Date: 20190612
  Transmission Date: 20190711
  Serious: Yes (Life-Threatening, Other)
  Sender: FDA-Public Use
  Company Number: IT-AUROBINDO-AUR-APL-2019-032877

PATIENT

DRUGS (107)
  1. DOXORUBICIN [Suspect]
     Active Substance: DOXORUBICIN
     Indication: DIFFUSE LARGE B-CELL LYMPHOMA
     Dosage: 89 MILLIGRAM
     Route: 042
     Dates: start: 20180713
  2. CYCLOPHOSPHAMIDE. [Suspect]
     Active Substance: CYCLOPHOSPHAMIDE
     Dosage: 1.33 MILLIGRAM, 1.335 MG
     Route: 042
     Dates: start: 20180601
  3. CHLORPHENAMINE [Suspect]
     Active Substance: CHLORPHENIRAMINE MALEATE
     Dosage: 10 MILLIGRAM
     Route: 042
     Dates: start: 20180713
  4. TRUXIMA [Suspect]
     Active Substance: RITUXIMAB-ABBS
     Dosage: 667.5 MILLIGRAM,  (+CHOP)
     Route: 042
     Dates: start: 20180531
  5. TRUXIMA [Suspect]
     Active Substance: RITUXIMAB-ABBS
     Dosage: 667.5 MILLIGRAM, (+CHOP)
     Route: 042
     Dates: start: 20180925
  6. EPIRUBICINE [Suspect]
     Active Substance: EPIRUBICIN
     Dosage: 178 MILLIGRAM
     Route: 030
     Dates: start: 20181024
  7. RINGERS SOLUTION [Concomitant]
     Active Substance: CALCIUM CHLORIDE\POTASSIUM CHLORIDE\SODIUM CHLORIDE
     Dosage: UNK
     Route: 065
     Dates: start: 20181024
  8. MESNA. [Concomitant]
     Active Substance: MESNA
     Dosage: 4450 MILLIGRAM
     Route: 065
     Dates: start: 20180928
  9. MESNA. [Concomitant]
     Active Substance: MESNA
     Dosage: 4450 MILLIGRAM
     Route: 065
     Dates: start: 20181024
  10. LAMIVUDINE. [Concomitant]
     Active Substance: LAMIVUDINE
     Indication: PRODUCT USED FOR UNKNOWN INDICATION
     Dosage: 100 MILLIGRAM, DAILY 1 CPS
     Route: 065
  11. ONDANSETRON [Suspect]
     Active Substance: ONDANSETRON
     Indication: PRODUCT USED FOR UNKNOWN INDICATION
     Dosage: 8 MILLIGRAM
     Route: 042
     Dates: start: 20180419
  12. ONDANSETRON [Suspect]
     Active Substance: ONDANSETRON
     Dosage: 8 MILLIGRAM, WITH IVE THERAPY
     Route: 042
     Dates: start: 20180928
  13. ONDANSETRON [Suspect]
     Active Substance: ONDANSETRON
     Dosage: 8 MILLIGRAM
     Route: 042
     Dates: start: 20180622
  14. DOXORUBICIN [Suspect]
     Active Substance: DOXORUBICIN
     Dosage: 89 MILLIGRAM
     Route: 042
     Dates: start: 20180329
  15. CHLORPHENAMINE [Suspect]
     Active Substance: CHLORPHENIRAMINE MALEATE
     Dosage: 10 MILLIGRAM
     Route: 042
     Dates: start: 20180329
  16. TRUXIMA [Suspect]
     Active Substance: RITUXIMAB-ABBS
     Indication: PRODUCT USED FOR UNKNOWN INDICATION
     Dosage: 665 MILLIGRAM, (+IEV)
     Route: 042
     Dates: start: 20180925
  17. TRUXIMA [Suspect]
     Active Substance: RITUXIMAB-ABBS
     Dosage: 667.5 MILLIGRAM, (+CHOP)
     Route: 042
     Dates: start: 20180621
  18. IFOSFAMIDE. [Suspect]
     Active Substance: IFOSFAMIDE
     Dosage: 4.4 MILLIGRAM, 4.400 MG
     Route: 042
     Dates: start: 20181024
  19. VINCRISTINE [Suspect]
     Active Substance: VINCRISTINE
     Indication: PRODUCT USED FOR UNKNOWN INDICATION
     Dosage: 2 MILLIGRAM
     Route: 042
     Dates: start: 20180601
  20. VINCRISTINE [Suspect]
     Active Substance: VINCRISTINE
     Dosage: 2 MILLIGRAM
     Route: 042
     Dates: start: 20180622
  21. PALONOSETRON. [Concomitant]
     Active Substance: PALONOSETRON HYDROCHLORIDE
     Dosage: 250 MICROGRAM
     Route: 030
     Dates: start: 20180926
  22. KCL [Concomitant]
     Active Substance: POTASSIUM CHLORIDE
     Dosage: UNK
     Route: 065
     Dates: start: 20180928
  23. RINGERS SOLUTION [Concomitant]
     Active Substance: CALCIUM CHLORIDE\POTASSIUM CHLORIDE\SODIUM CHLORIDE
     Dosage: UNK
     Route: 065
     Dates: start: 20180927
  24. NACL [Concomitant]
     Active Substance: SODIUM CHLORIDE
     Dosage: UNK
     Route: 065
     Dates: start: 20181026
  25. MESNA. [Concomitant]
     Active Substance: MESNA
     Dosage: 4450 MILLIGRAM
     Route: 065
     Dates: start: 20181025
  26. ONDANSETRON [Suspect]
     Active Substance: ONDANSETRON
     Dosage: 8 MILLIGRAM
     Route: 042
     Dates: start: 20180713
  27. CHLORPHENAMINE [Suspect]
     Active Substance: CHLORPHENIRAMINE MALEATE
     Dosage: 10 MILLIGRAM
     Route: 042
     Dates: start: 20180419
  28. IFOSFAMIDE. [Suspect]
     Active Substance: IFOSFAMIDE
     Dosage: 4.4 MILLIGRAM, 4.400 MG
     Route: 042
     Dates: start: 20181026
  29. VINCRISTINE [Suspect]
     Active Substance: VINCRISTINE
     Dosage: 2 MILLIGRAM
     Route: 042
     Dates: start: 20180419
  30. DEXAMETHASONE. [Concomitant]
     Active Substance: DEXAMETHASONE
     Indication: PRODUCT USED FOR UNKNOWN INDICATION
     Dosage: 14 MILLIGRAM
     Route: 065
     Dates: start: 20180928
  31. DEXAMETHASONE. [Concomitant]
     Active Substance: DEXAMETHASONE
     Dosage: 14 MILLIGRAM
     Route: 065
     Dates: start: 20181024
  32. DEXAMETHASONE. [Concomitant]
     Active Substance: DEXAMETHASONE
     Dosage: 14 MILLIGRAM
     Route: 065
     Dates: start: 20180927
  33. PALONOSETRON. [Concomitant]
     Active Substance: PALONOSETRON HYDROCHLORIDE
     Indication: PRODUCT USED FOR UNKNOWN INDICATION
     Dosage: 250 MICROGRAM
     Route: 030
     Dates: start: 20181024
  34. GLUCOSE [Concomitant]
     Active Substance: DEXTROSE
     Dosage: UNK
     Route: 065
     Dates: start: 20181024
  35. GLUCOSE [Concomitant]
     Active Substance: DEXTROSE
     Dosage: UNK
     Route: 065
     Dates: start: 20180926
  36. MESNA. [Concomitant]
     Active Substance: MESNA
     Dosage: 4450 MILLIGRAM
     Route: 065
     Dates: start: 20180927
  37. ONDANSETRON [Suspect]
     Active Substance: ONDANSETRON
     Dosage: 8 MILLIGRAM, WITH IVE THERAPY
     Route: 042
     Dates: start: 20181025
  38. DOXORUBICIN [Suspect]
     Active Substance: DOXORUBICIN
     Dosage: 89 MILLIGRAM
     Route: 042
     Dates: start: 20180419
  39. CYCLOPHOSPHAMIDE. [Suspect]
     Active Substance: CYCLOPHOSPHAMIDE
     Dosage: 1.33 MILLIGRAM, 1.335 MG
     Route: 042
     Dates: start: 20180713
  40. TRUXIMA [Suspect]
     Active Substance: RITUXIMAB-ABBS
     Dosage: 667.5 MILLIGRAM, (MAINTENANCE)
     Route: 042
     Dates: start: 20180803
  41. IFOSFAMIDE. [Suspect]
     Active Substance: IFOSFAMIDE
     Indication: PRODUCT USED FOR UNKNOWN INDICATION
     Dosage: 4.4 MILLIGRAM, 4.400 MG
     Route: 042
     Dates: start: 20181025
  42. ETOPOSIDE. [Suspect]
     Active Substance: ETOPOSIDE
     Dosage: 267 MILLIGRAM
     Route: 042
     Dates: start: 20181025
  43. DEXAMETHASONE. [Concomitant]
     Active Substance: DEXAMETHASONE
     Dosage: 14 MILLIGRAM
     Route: 065
     Dates: start: 20181025
  44. KCL [Concomitant]
     Active Substance: POTASSIUM CHLORIDE
     Dosage: UNK
     Route: 065
     Dates: start: 20181026
  45. RINGERS SOLUTION [Concomitant]
     Active Substance: CALCIUM CHLORIDE\POTASSIUM CHLORIDE\SODIUM CHLORIDE
     Indication: PRODUCT USED FOR UNKNOWN INDICATION
     Dosage: UNK
     Route: 065
     Dates: start: 20180928
  46. NACL [Concomitant]
     Active Substance: SODIUM CHLORIDE
     Dosage: UNK
     Route: 065
     Dates: start: 20180927
  47. MESNA. [Concomitant]
     Active Substance: MESNA
     Dosage: 4450 MILLIGRAM
     Route: 065
     Dates: start: 20181026
  48. BACTRIM [Concomitant]
     Active Substance: SULFAMETHOXAZOLE\TRIMETHOPRIM
     Indication: PRODUCT USED FOR UNKNOWN INDICATION
     Dosage: 960 MILLIGRAM, 1 CPS ON MONDAY-WEDNESDAY-FRIDAY
     Route: 065
  49. ZOFRAN [Concomitant]
     Active Substance: ONDANSETRON HYDROCHLORIDE
     Indication: PRODUCT USED FOR UNKNOWN INDICATION
     Dosage: 8 MILLIGRAM, 3 TIMES A DAY
     Route: 065
  50. ONDANSETRON [Suspect]
     Active Substance: ONDANSETRON
     Dosage: 8 MILLIGRAM, WITH IVE THERAPY
     Route: 042
     Dates: start: 20180927
  51. METHYLPREDNISOLONE. [Suspect]
     Active Substance: METHYLPREDNISOLONE
     Dosage: 125 MILLIGRAM
     Route: 042
     Dates: start: 20180329
  52. METHYLPREDNISOLONE. [Suspect]
     Active Substance: METHYLPREDNISOLONE
     Dosage: 125 MILLIGRAM
     Route: 042
     Dates: start: 20180713
  53. METHYLPREDNISOLONE. [Suspect]
     Active Substance: METHYLPREDNISOLONE
     Dosage: 125 MILLIGRAM
     Route: 042
     Dates: start: 20180419
  54. IFOSFAMIDE. [Suspect]
     Active Substance: IFOSFAMIDE
     Dosage: 4.4 MILLIGRAM, 4.400 MG
     Route: 042
     Dates: start: 20180928
  55. ETOPOSIDE. [Suspect]
     Active Substance: ETOPOSIDE
     Indication: DIFFUSE LARGE B-CELL LYMPHOMA
     Dosage: 267 MILLIGRAM
     Route: 042
     Dates: start: 20180926
  56. KCL [Concomitant]
     Active Substance: POTASSIUM CHLORIDE
     Indication: PRODUCT USED FOR UNKNOWN INDICATION
     Dosage: UNK
     Route: 065
     Dates: start: 20181025
  57. KCL [Concomitant]
     Active Substance: POTASSIUM CHLORIDE
     Dosage: UNK
     Route: 065
     Dates: start: 20180926
  58. KCL [Concomitant]
     Active Substance: POTASSIUM CHLORIDE
     Dosage: UNK
     Route: 065
     Dates: start: 20180927
  59. RINGERS SOLUTION [Concomitant]
     Active Substance: CALCIUM CHLORIDE\POTASSIUM CHLORIDE\SODIUM CHLORIDE
     Dosage: UNK
     Route: 065
     Dates: start: 20181025
  60. ONDANSETRON [Suspect]
     Active Substance: ONDANSETRON
     Dosage: 8 MILLIGRAM
     Route: 042
     Dates: start: 20181026
  61. DOXORUBICIN [Suspect]
     Active Substance: DOXORUBICIN
     Dosage: 89 MILLIGRAM
     Route: 042
     Dates: start: 20180601
  62. DOXORUBICIN [Suspect]
     Active Substance: DOXORUBICIN
     Dosage: 89 MILLIGRAM
     Route: 042
     Dates: start: 20180512
  63. CYCLOPHOSPHAMIDE. [Suspect]
     Active Substance: CYCLOPHOSPHAMIDE
     Dosage: 1.33 MILLIGRAM, 1.335 MG
     Route: 042
     Dates: start: 20180419
  64. TRUXIMA [Suspect]
     Active Substance: RITUXIMAB-ABBS
     Dosage: 665 MILLIGRAM, (+IEV)
     Route: 042
     Dates: start: 20181023
  65. TRUXIMA [Suspect]
     Active Substance: RITUXIMAB-ABBS
     Dosage: 667.5 MILLIGRAM,  (+CHOP)
     Route: 042
     Dates: start: 20180418
  66. TRUXIMA [Suspect]
     Active Substance: RITUXIMAB-ABBS
     Dosage: 667.5 MILLIGRAM, (+CHOP)
     Route: 042
     Dates: start: 20180511
  67. TRUXIMA [Suspect]
     Active Substance: RITUXIMAB-ABBS
     Dosage: 667.5 MILLIGRAM
     Route: 042
     Dates: start: 20180323, end: 20181023
  68. METHYLPREDNISOLONE. [Suspect]
     Active Substance: METHYLPREDNISOLONE
     Dosage: 125 MILLIGRAM
     Route: 042
     Dates: start: 20180512
  69. ETOPOSIDE. [Suspect]
     Active Substance: ETOPOSIDE
     Dosage: 267 MILLIGRAM
     Route: 042
     Dates: start: 20181026
  70. KCL [Concomitant]
     Active Substance: POTASSIUM CHLORIDE
     Dosage: UNK
     Route: 065
     Dates: start: 20181024
  71. RINGERS SOLUTION [Concomitant]
     Active Substance: CALCIUM CHLORIDE\POTASSIUM CHLORIDE\SODIUM CHLORIDE
     Dosage: UNK
     Route: 065
     Dates: start: 20181026
  72. GLUCOSE [Concomitant]
     Active Substance: DEXTROSE
     Indication: PRODUCT USED FOR UNKNOWN INDICATION
     Dosage: UNK
     Route: 065
     Dates: start: 20181025
  73. GLUCOSE [Concomitant]
     Active Substance: DEXTROSE
     Dosage: UNK
     Route: 065
     Dates: start: 20180928
  74. GLUCOSE [Concomitant]
     Active Substance: DEXTROSE
     Dosage: UNK
     Route: 065
     Dates: start: 20180927
  75. GLUCOSE [Concomitant]
     Active Substance: DEXTROSE
     Dosage: UNK
     Route: 065
     Dates: start: 20181026
  76. CYCLOPHOSPHAMIDE. [Suspect]
     Active Substance: CYCLOPHOSPHAMIDE
     Indication: DIFFUSE LARGE B-CELL LYMPHOMA
     Dosage: 1.33 MILLIGRAM, 1.335 MG
     Route: 042
     Dates: start: 20180622
  77. CHLORPHENAMINE [Suspect]
     Active Substance: CHLORPHENIRAMINE MALEATE
     Indication: PRODUCT USED FOR UNKNOWN INDICATION
     Dosage: 10 MILLIGRAM
     Route: 042
     Dates: start: 20180622
  78. TRUXIMA [Suspect]
     Active Substance: RITUXIMAB-ABBS
     Dosage: 665 MILLIGRAM, (+CHOP)
     Route: 042
     Dates: start: 20180712
  79. TRUXIMA [Suspect]
     Active Substance: RITUXIMAB-ABBS
     Dosage: 665 MILLIGRAM, (MAINTENANCE)
     Route: 042
     Dates: start: 20180823
  80. METHYLPREDNISOLONE. [Suspect]
     Active Substance: METHYLPREDNISOLONE
     Indication: PRODUCT USED FOR UNKNOWN INDICATION
     Dosage: 125 MILLIGRAM
     Route: 042
     Dates: start: 20180622
  81. METHYLPREDNISOLONE. [Suspect]
     Active Substance: METHYLPREDNISOLONE
     Dosage: 125 MILLIGRAM
     Route: 042
     Dates: start: 20180601
  82. EPIRUBICINE [Suspect]
     Active Substance: EPIRUBICIN
     Indication: DIFFUSE LARGE B-CELL LYMPHOMA
     Dosage: 178 MILLIGRAM
     Route: 030
     Dates: start: 20180926
  83. IFOSFAMIDE. [Suspect]
     Active Substance: IFOSFAMIDE
     Dosage: 4.4 MILLIGRAM, 4.400 MG
     Route: 042
     Dates: start: 20180926
  84. ETOPOSIDE. [Suspect]
     Active Substance: ETOPOSIDE
     Dosage: 267 MILLIGRAM
     Route: 042
     Dates: start: 20181024
  85. ETOPOSIDE. [Suspect]
     Active Substance: ETOPOSIDE
     Dosage: 267 MILLIGRAM
     Route: 042
     Dates: start: 20180927
  86. ETOPOSIDE. [Suspect]
     Active Substance: ETOPOSIDE
     Dosage: 267 MILLIGRAM
     Route: 042
     Dates: start: 20180928
  87. VINCRISTINE [Suspect]
     Active Substance: VINCRISTINE
     Dosage: 2 MILLIGRAM
     Route: 042
     Dates: start: 20180512
  88. VINCRISTINE [Suspect]
     Active Substance: VINCRISTINE
     Dosage: 2 MILLIGRAM
     Route: 042
     Dates: start: 20180713
  89. DEXAMETHASONE. [Concomitant]
     Active Substance: DEXAMETHASONE
     Dosage: 14 MILLIGRAM
     Route: 065
     Dates: start: 20180826
  90. RINGERS SOLUTION [Concomitant]
     Active Substance: CALCIUM CHLORIDE\POTASSIUM CHLORIDE\SODIUM CHLORIDE
     Dosage: UNK
     Route: 065
     Dates: start: 20180926
  91. PANTORC [Concomitant]
     Active Substance: PANTOPRAZOLE SODIUM
     Indication: PRODUCT USED FOR UNKNOWN INDICATION
     Dosage: 40 MILLIGRAM, DAILY, 1 CP
     Route: 065
  92. ONDANSETRON [Suspect]
     Active Substance: ONDANSETRON
     Dosage: 8 MILLIGRAM
     Route: 042
     Dates: start: 20180601
  93. ONDANSETRON [Suspect]
     Active Substance: ONDANSETRON
     Dosage: 8 MILLIGRAM
     Route: 042
     Dates: start: 20180512
  94. ONDANSETRON [Suspect]
     Active Substance: ONDANSETRON
     Dosage: 8 MILLIGRAM
     Route: 042
     Dates: start: 20180329
  95. DOXORUBICIN [Suspect]
     Active Substance: DOXORUBICIN
     Dosage: 89 MILLIGRAM
     Route: 042
     Dates: start: 20180622
  96. CYCLOPHOSPHAMIDE. [Suspect]
     Active Substance: CYCLOPHOSPHAMIDE
     Dosage: 1.33 MILLIGRAM, 1.335 MG
     Route: 042
     Dates: start: 20180329
  97. CYCLOPHOSPHAMIDE. [Suspect]
     Active Substance: CYCLOPHOSPHAMIDE
     Dosage: 1.33 MILLIGRAM, 1.335 MG
     Route: 042
     Dates: start: 20180512
  98. CHLORPHENAMINE [Suspect]
     Active Substance: CHLORPHENIRAMINE MALEATE
     Dosage: 10 MILLIGRAM
     Route: 042
     Dates: start: 20180601
  99. CHLORPHENAMINE [Suspect]
     Active Substance: CHLORPHENIRAMINE MALEATE
     Dosage: 10 MILLIGRAM
     Route: 042
     Dates: start: 20180512
  100. IFOSFAMIDE. [Suspect]
     Active Substance: IFOSFAMIDE
     Dosage: 4.4 MILLIGRAM, 4.400 MG
     Route: 042
     Dates: start: 20180927
  101. VINCRISTINE [Suspect]
     Active Substance: VINCRISTINE
     Dosage: 2 MILLIGRAM
     Route: 042
     Dates: start: 20180329
  102. DEXAMETHASONE. [Concomitant]
     Active Substance: DEXAMETHASONE
     Dosage: 14 MILLIGRAM
     Route: 065
     Dates: start: 20181026
  103. NACL [Concomitant]
     Active Substance: SODIUM CHLORIDE
     Indication: PRODUCT USED FOR UNKNOWN INDICATION
     Dosage: UNK
     Route: 065
     Dates: start: 20180926
  104. NACL [Concomitant]
     Active Substance: SODIUM CHLORIDE
     Dosage: UNK
     Route: 065
     Dates: start: 20181024
  105. NACL [Concomitant]
     Active Substance: SODIUM CHLORIDE
     Dosage: UNK
     Route: 065
     Dates: start: 20181025
  106. NACL [Concomitant]
     Active Substance: SODIUM CHLORIDE
     Dosage: UNK
     Route: 065
     Dates: start: 20180928
  107. MESNA. [Concomitant]
     Active Substance: MESNA
     Indication: PRODUCT USED FOR UNKNOWN INDICATION
     Dosage: 4450 MILLIGRAM
     Route: 065
     Dates: start: 20180926

REACTIONS (3)
  - Nausea [Recovered/Resolved]
  - Neutropenia [Recovered/Resolved]
  - Asthenia [Recovered/Resolved]

NARRATIVE: CASE EVENT DATE: 20180622
